FAERS Safety Report 16288759 (Version 1)
Quarter: 2019Q2

REPORT INFORMATION
  Report Type: Spontaneous
  Country: US (occurrence: US)
  Receive Date: 20190509
  Receipt Date: 20190509
  Transmission Date: 20190711
  Serious: No
  Sender: FDA-Public Use
  Company Number: US-TEVA-2019-US-1045635

PATIENT
  Sex: Female
  Weight: 54 kg

DRUGS (5)
  1. ATIVAN [Concomitant]
     Active Substance: LORAZEPAM
  2. AUSTEDO [Suspect]
     Active Substance: DEUTETRABENAZINE
     Indication: TARDIVE DYSKINESIA
     Dosage: 6 MILLIGRAM DAILY;
     Dates: start: 20190413
  3. OXCARBAZEPINE. [Concomitant]
     Active Substance: OXCARBAZEPINE
  4. IMODIUM [Concomitant]
     Active Substance: LOPERAMIDE HYDROCHLORIDE
  5. LEVOTHYROXINE. [Concomitant]
     Active Substance: LEVOTHYROXINE

REACTIONS (1)
  - Drug ineffective [Unknown]
